FAERS Safety Report 8321391-5 (Version None)
Quarter: 2012Q2

REPORT INFORMATION
  Report Type: 
  Country: None (occurrence: None)
  Receive Date: 20120430
  Receipt Date: 20120416
  Transmission Date: 20120825
  Serious: Yes (Hospitalization, Other)
  Sender: FDA-Public Use
  Company Number: US-ASTELLAS-2012US004237

PATIENT
  Sex: Male

DRUGS (10)
  1. ADVAIR DISKUS 100/50 [Concomitant]
     Indication: PRODUCT USED FOR UNKNOWN INDICATION
     Dosage: UNK
     Route: 065
  2. ERLOTINIB HYDROCHLORIDE [Suspect]
     Indication: NON-SMALL CELL LUNG CANCER STAGE IIIB
     Dosage: 150 MG, UNKNOWN/D
     Route: 048
     Dates: start: 20120210, end: 20120321
  3. SENNA [Concomitant]
     Indication: PRODUCT USED FOR UNKNOWN INDICATION
     Dosage: UNK
     Route: 065
     Dates: start: 20120111
  4. REGLAN [Concomitant]
     Indication: PRODUCT USED FOR UNKNOWN INDICATION
     Dosage: UNK
     Route: 065
  5. CYMBALTA [Concomitant]
     Indication: PRODUCT USED FOR UNKNOWN INDICATION
     Dosage: UNK
     Route: 065
  6. OXYCONTIN [Concomitant]
     Indication: PRODUCT USED FOR UNKNOWN INDICATION
     Dosage: UNK
     Route: 065
     Dates: start: 20120112
  7. XOPENEX [Concomitant]
     Indication: PRODUCT USED FOR UNKNOWN INDICATION
     Dosage: UNK
     Route: 065
  8. DASATINIB [Suspect]
     Indication: NON-SMALL CELL LUNG CANCER STAGE IIIB
     Dosage: 50 MG, UNKNOWN/D
     Route: 048
     Dates: start: 20120210, end: 20120321
  9. OXYCODONE HCL [Concomitant]
     Indication: PRODUCT USED FOR UNKNOWN INDICATION
     Dosage: UNK
     Route: 065
  10. TESSALON [Concomitant]
     Indication: PRODUCT USED FOR UNKNOWN INDICATION
     Dosage: UNK
     Route: 065

REACTIONS (10)
  - PERICARDIAL EFFUSION [None]
  - PLEURAL EFFUSION [None]
  - HYPOXIA [None]
  - RADIATION PNEUMONITIS [None]
  - PYREXIA [None]
  - DYSPNOEA [None]
  - CHEST PAIN [None]
  - PNEUMONIA [None]
  - PULMONARY HILAR ENLARGEMENT [None]
  - CARDIAC FAILURE CONGESTIVE [None]
